FAERS Safety Report 15751640 (Version 1)
Quarter: 2018Q4

REPORT INFORMATION
  Report Type: Spontaneous
  Country: CA (occurrence: CA)
  Receive Date: 20181221
  Receipt Date: 20181221
  Transmission Date: 20190205
  Serious: Yes (Hospitalization)
  Sender: FDA-Public Use
  Company Number: CA-PFIZER INC-2018509785

PATIENT
  Age: 31 Year
  Sex: Male

DRUGS (1)
  1. XELJANZ [Suspect]
     Active Substance: TOFACITINIB CITRATE
     Indication: COLITIS ULCERATIVE
     Dosage: 10 MG, 2X/DAY
     Route: 048
     Dates: start: 20181130, end: 20181211

REACTIONS (9)
  - Yellow skin [Unknown]
  - Product dose omission [Unknown]
  - Fatigue [Unknown]
  - Faeces hard [Not Recovered/Not Resolved]
  - Oral disorder [Unknown]
  - Pancreatic mass [Unknown]
  - Anaemia [Unknown]
  - Defaecation urgency [Unknown]
  - Faeces pale [Not Recovered/Not Resolved]

NARRATIVE: CASE EVENT DATE: 201812
